FAERS Safety Report 17074913 (Version 1)
Quarter: 2019Q4

REPORT INFORMATION
  Report Type: Report from Study
  Country: US (occurrence: US)
  Receive Date: 20191126
  Receipt Date: 20191126
  Transmission Date: 20200122
  Serious: Yes (Other)
  Sender: FDA-Public Use
  Company Number: US-BRECKENRIDGE PHARMACEUTICAL, INC.-2077199

PATIENT
  Age: 37 Year
  Sex: Female
  Weight: 92.27 kg

DRUGS (5)
  1. ESTRADIOL/ NORETHINDRONE ACETATE [Suspect]
     Active Substance: ESTRADIOL\NORETHINDRONE ACETATE
     Indication: HAEMORRHAGE
     Route: 048
     Dates: start: 20171101, end: 20180128
  2. IBUPROFEN. [Concomitant]
     Active Substance: IBUPROFEN
     Route: 048
     Dates: start: 2010
  3. FERROUS SULFATE. [Concomitant]
     Active Substance: FERROUS SULFATE
     Route: 048
     Dates: start: 20170502
  4. ALBUTEROL. [Concomitant]
     Active Substance: ALBUTEROL
  5. ELAGOLIX [Suspect]
     Active Substance: ELAGOLIX
     Route: 048
     Dates: start: 20171101, end: 20180128

REACTIONS (2)
  - Abortion spontaneous [None]
  - Exposure during pregnancy [None]
